FAERS Safety Report 5152683-9 (Version None)
Quarter: 2006Q4

REPORT INFORMATION
  Report Type: 
  Country: None (occurrence: None)
  Receive Date: 20061116
  Receipt Date: 20061108
  Transmission Date: 20070319
  Serious: Yes (Hospitalization)
  Sender: FDA-Public Use
  Company Number: US-MERCK-0611USA03028

PATIENT
  Age: 51 Year
  Sex: Male

DRUGS (1)
  1. CRIXIVAN [Suspect]
     Route: 048

REACTIONS (2)
  - HAEMATURIA [None]
  - PROSTATITIS [None]
